FAERS Safety Report 12154215 (Version 1)
Quarter: 2016Q1

REPORT INFORMATION
  Report Type: Spontaneous
  Country: US (occurrence: None)
  Receive Date: 20160304
  Receipt Date: 20160304
  Transmission Date: 20160526
  Serious: Yes (Hospitalization)
  Sender: FDA-Public Use
  Company Number: None

PATIENT
  Age: 74 Year
  Sex: Female

DRUGS (1)
  1. CAPECITABINE 500MG TEVA [Suspect]
     Active Substance: CAPECITABINE
     Indication: COLON NEOPLASM
     Dosage: 500MG 3 TABLETS EVERY MORNING AND 2 TABLETS EVERY EVENING ORAL
     Route: 048
     Dates: start: 20141010, end: 20160302

REACTIONS (2)
  - Hypertension [None]
  - Seizure [None]

NARRATIVE: CASE EVENT DATE: 20160104
